FAERS Safety Report 8301677-0 (Version None)
Quarter: 2012Q2

REPORT INFORMATION
  Report Type: 
  Country: None (occurrence: None)
  Receive Date: 20120420
  Receipt Date: 20120415
  Transmission Date: 20120825
  Serious: Yes (Hospitalization, Other)
  Sender: FDA-Public Use
  Company Number: BR-ABBOTT-12P-020-0918148-00

PATIENT
  Sex: Female
  Weight: 68 kg

DRUGS (7)
  1. PREDNISONE TAB [Concomitant]
     Indication: PAIN
     Dosage: 5 MG EVERY OTHER DAY
     Route: 048
  2. LEFLUNOMIDE [Concomitant]
     Indication: PRODUCT USED FOR UNKNOWN INDICATION
  3. PROPRANOLOL [Concomitant]
     Indication: HYPERTENSION
  4. METHOTREXATE [Concomitant]
     Indication: RHEUMATOID ARTHRITIS
     Dosage: TEN TABLETS WEEKLY = 25 MG
     Route: 048
     Dates: start: 20040101
  5. PREDNISONE TAB [Concomitant]
     Indication: MUSCULOSKELETAL PAIN
     Route: 048
     Dates: start: 20040101
  6. ENALAPRIL MALEATE [Concomitant]
     Indication: HYPERTENSION
  7. HUMIRA [Suspect]
     Indication: RHEUMATOID ARTHRITIS
     Route: 058
     Dates: start: 20110608, end: 20111102

REACTIONS (6)
  - FURUNCLE [None]
  - CHEST PAIN [None]
  - SOFT TISSUE NECROSIS [None]
  - DYSPNOEA [None]
  - FATIGUE [None]
  - CORONARY ARTERY INSUFFICIENCY [None]
